FAERS Safety Report 25427415 (Version 1)
Quarter: 2025Q2

REPORT INFORMATION
  Report Type: Spontaneous
  Country: PT (occurrence: PT)
  Receive Date: 20250612
  Receipt Date: 20250612
  Transmission Date: 20250716
  Serious: Yes (Other)
  Sender: SANOFI AVENTIS
  Company Number: PT-SA-2025SA162813

PATIENT
  Age: 63 Year
  Sex: Female

DRUGS (4)
  1. HEPARIN [Suspect]
     Active Substance: HEPARIN SODIUM
  2. ENOXAPARIN SODIUM [Suspect]
     Active Substance: ENOXAPARIN SODIUM
     Indication: Hypocoagulable state
  3. ENOXAPARIN SODIUM [Suspect]
     Active Substance: ENOXAPARIN SODIUM
     Indication: Pulmonary embolism
  4. RIVAROXABAN [Suspect]
     Active Substance: RIVAROXABAN
     Indication: Hypocoagulable state

REACTIONS (8)
  - Pulmonary embolism [Unknown]
  - Heparin-induced thrombocytopenia [Recovered/Resolved]
  - Haemoptysis [Recovered/Resolved]
  - Pyrexia [Recovered/Resolved]
  - Tachycardia [Recovered/Resolved]
  - Thrombocytopenia [Recovered/Resolved]
  - Venous thrombosis [Recovered/Resolved]
  - Atrial thrombosis [Recovered/Resolved]
